FAERS Safety Report 10723456 (Version 2)
Quarter: 2015Q1

REPORT INFORMATION
  Report Type: Spontaneous
  Country: US (occurrence: US)
  Receive Date: 20150120
  Receipt Date: 20150212
  Transmission Date: 20150721
  Serious: Yes (Hospitalization)
  Sender: FDA-Public Use
  Company Number: US-009507513-1501USA005790

PATIENT
  Age: 32 Year
  Sex: Female

DRUGS (4)
  1. MAXALT [Suspect]
     Active Substance: RIZATRIPTAN BENZOATE
     Indication: MIGRAINE
     Dosage: 1 TABLET (10 MG) AS NEEDED
     Route: 048
     Dates: start: 2012
  2. VITAMIN B2 (RIBOFLAVIN) [Concomitant]
     Dosage: UNK
  3. PRENATAL MAGNESIUM (UNSPECIFIED) [Concomitant]
     Dosage: UNK
  4. FIORICET [Concomitant]
     Active Substance: ACETAMINOPHEN\BUTALBITAL\CAFFEINE
     Dosage: UNK

REACTIONS (2)
  - Migraine [Unknown]
  - Exposure during pregnancy [Unknown]
